FAERS Safety Report 25868452 (Version 1)
Quarter: 2025Q4

REPORT INFORMATION
  Report Type: Spontaneous
  Country: IN (occurrence: IN)
  Receive Date: 20251001
  Receipt Date: 20251001
  Transmission Date: 20260118
  Serious: Yes (Other)
  Sender: GRANULES PHARMACEUTICALS INC
  Company Number: IN-GRANULES-IN-2025GRALIT00536

PATIENT
  Age: 9 Year
  Sex: Female

DRUGS (5)
  1. LEVETIRACETAM [Suspect]
     Active Substance: LEVETIRACETAM
     Indication: Product used for unknown indication
     Route: 065
  2. RIFAMPIN [Concomitant]
     Active Substance: RIFAMPIN
     Route: 065
  3. ISONIAZID [Concomitant]
     Active Substance: ISONIAZID
     Route: 065
  4. PYRAZINAMIDE [Concomitant]
     Active Substance: PYRAZINAMIDE
     Route: 065
  5. ETHAMBUTOL [Concomitant]
     Active Substance: ETHAMBUTOL HYDROCHLORIDE
     Route: 065

REACTIONS (1)
  - Pulmonary toxicity [Recovering/Resolving]
